FAERS Safety Report 4698526-9 (Version None)
Quarter: 2005Q2

REPORT INFORMATION
  Report Type: 
  Country: None (occurrence: None)
  Receive Date: 20050622
  Receipt Date: 20050609
  Transmission Date: 20051028
  Serious: Yes (Disabling, Other)
  Sender: FDA-Public Use
  Company Number: 2005087245

PATIENT
  Age: 48 Year
  Sex: Male

DRUGS (1)
  1. VIAGRA [Suspect]
     Indication: ERECTILE DYSFUNCTION
     Dosage: 100 MG (50 MG AS NECESSARY) ORAL
     Route: 048

REACTIONS (2)
  - BLINDNESS [None]
  - CEREBRAL THROMBOSIS [None]
